FAERS Safety Report 14901803 (Version 1)
Quarter: 2018Q2

REPORT INFORMATION
  Report Type: Spontaneous
  Country: US (occurrence: US)
  Receive Date: 20180428
  Receipt Date: 20180428
  Transmission Date: 20180711
  Serious: No
  Sender: FDA-Public Use
  Company Number: None

PATIENT
  Age: 55 Year
  Sex: Female

DRUGS (6)
  1. SERTRALINE [Suspect]
     Active Substance: SERTRALINE HYDROCHLORIDE
     Route: 048
     Dates: start: 20180313, end: 20180428
  2. LEVOTHRYOXINE 100MCG [Concomitant]
  3. ROSUVASTATIN 20MG [Concomitant]
     Active Substance: ROSUVASTATIN
  4. FENOFIBRIC 135MG [Concomitant]
  5. LOSARTAN 50MG [Concomitant]
     Active Substance: LOSARTAN
  6. AMLODIPINE [Concomitant]
     Active Substance: AMLODIPINE BESYLATE

REACTIONS (6)
  - Anxiety [None]
  - Insomnia [None]
  - Heart rate increased [None]
  - Somnolence [None]
  - Depression [None]
  - Blood pressure increased [None]

NARRATIVE: CASE EVENT DATE: 20180313
